FAERS Safety Report 4433388-6 (Version None)
Quarter: 2004Q3

REPORT INFORMATION
  Report Type: 
  Country: None (occurrence: None)
  Receive Date: 20040824
  Receipt Date: 20040812
  Transmission Date: 20050211
  Serious: Yes (Hospitalization)
  Sender: FDA-Public Use
  Company Number: 2004PK01373

PATIENT
  Sex: Female

DRUGS (1)
  1. FASLODEX [Suspect]
     Indication: BREAST CANCER
     Dosage: 250 MG Q4WK IM
     Dates: start: 20040501

REACTIONS (3)
  - BREAST CANCER [None]
  - CEREBROVASCULAR ACCIDENT [None]
  - DISEASE RECURRENCE [None]
